FAERS Safety Report 6973069-8 (Version None)
Quarter: 2010Q3

REPORT INFORMATION
  Report Type: 
  Country: None (occurrence: None)
  Receive Date: 20100909
  Receipt Date: 20100902
  Transmission Date: 20110219
  Serious: Yes (Death, Hospitalization)
  Sender: FDA-Public Use
  Company Number: JP-BRISTOL-MYERS SQUIBB COMPANY-15262587

PATIENT
  Age: 85 Year
  Sex: Male

DRUGS (4)
  1. CYCLOPHOSPHAMIDE [Suspect]
     Indication: LYMPHOMA
  2. DOXORUBICIN HCL [Suspect]
     Indication: LYMPHOMA
  3. VINCRISTINE SULFATE [Suspect]
     Indication: LYMPHOMA
     Dosage: INFUSION
  4. PREDNISOLONE [Concomitant]
     Indication: LYMPHOMA

REACTIONS (5)
  - FEBRILE NEUTROPENIA [None]
  - HAEMATOCHEZIA [None]
  - HEPATIC FUNCTION ABNORMAL [None]
  - HYPOVOLAEMIC SHOCK [None]
  - IMPAIRED GASTRIC EMPTYING [None]
